FAERS Safety Report 11444759 (Version 1)
Quarter: 2015Q3

REPORT INFORMATION
  Report Type: Spontaneous
  Country: US (occurrence: US)
  Receive Date: 20150902
  Receipt Date: 20150902
  Transmission Date: 20151125
  Serious: No
  Sender: FDA-Public Use
  Company Number: US-ASTRAZENECA-2015SE81853

PATIENT
  Sex: Male

DRUGS (1)
  1. PULMICORT FLEXHALER [Suspect]
     Active Substance: BUDESONIDE
     Dosage: DOSE UNKNOWN, 2 PUFFS TWICE A DAY
     Route: 055
     Dates: start: 20150818

REACTIONS (2)
  - Peripheral swelling [Recovered/Resolved]
  - Fatigue [Recovered/Resolved]
